FAERS Safety Report 4745913-6 (Version None)
Quarter: 2005Q3

REPORT INFORMATION
  Report Type: 
  Country: None (occurrence: None)
  Receive Date: 20050816
  Receipt Date: 20050516
  Transmission Date: 20060218
  Serious: Yes (Hospitalization)
  Sender: FDA-Public Use
  Company Number: US-GLAXOSMITHKLINE-A0558787A

PATIENT
  Age: 47 Year
  Sex: Female
  Weight: 63.6 kg

DRUGS (18)
  1. LAMICTAL [Suspect]
     Indication: BIPOLAR DISORDER
     Route: 048
     Dates: start: 20040422
  2. TRIFLUOPERAZINE HCL [Suspect]
     Indication: MANIA
     Dates: end: 20050415
  3. LITHIUM [Concomitant]
     Indication: BIPOLAR DISORDER
     Dosage: 300MG IN THE MORNING
     Route: 048
     Dates: start: 20021031
  4. PROTONIX [Concomitant]
     Indication: GASTROOESOPHAGEAL REFLUX DISEASE
     Dosage: 40MG IN THE MORNING
     Route: 048
  5. BACLOFEN [Concomitant]
     Indication: MUSCLE SPASMS
     Dosage: 20MG FOUR TIMES PER DAY
     Route: 048
  6. AMANTADINE [Concomitant]
     Indication: EXTRAPYRAMIDAL DISORDER
     Dosage: 100MG IN THE MORNING
     Route: 048
     Dates: start: 20050412, end: 20050516
  7. ALESSE [Concomitant]
     Indication: DYSMENORRHOEA
     Dosage: 1TAB PER DAY
     Route: 048
     Dates: start: 20040801
  8. LORAZEPAM [Concomitant]
     Indication: ANXIETY
     Dosage: 3.5MG PER DAY
     Route: 048
  9. DIPHENHYDRAMINE HCL [Concomitant]
     Indication: SLEEP DISORDER
     Dosage: 25MG AT NIGHT
     Route: 048
     Dates: start: 20030401
  10. QUININE SULFATE [Concomitant]
     Indication: MUSCLE SPASMS
     Dosage: 325MG AT NIGHT
     Route: 048
     Dates: start: 20050401
  11. FISH OIL [Concomitant]
     Indication: BIPOLAR DISORDER
     Dosage: 1000MG IN THE MORNING
     Route: 048
  12. REMIFEMIN [Concomitant]
     Indication: HOT FLUSH
     Dosage: 1TAB IN THE MORNING
     Route: 048
     Dates: start: 20040701
  13. VITAMIN B COMPLEX CAP [Concomitant]
     Indication: AFFECTIVE DISORDER
     Dosage: 1TAB IN THE MORNING
     Route: 048
     Dates: start: 20050412
  14. CRANBERRY [Concomitant]
     Indication: CYSTITIS
     Dosage: 200MG IN THE MORNING
     Route: 048
     Dates: start: 20050412
  15. IMODIUM A-D [Concomitant]
  16. WELLBUTRIN [Concomitant]
     Indication: DEPRESSION
     Dates: end: 20050301
  17. TRAZODONE [Concomitant]
     Indication: SLEEP DISORDER
     Dates: end: 20050301
  18. AMBIEN [Concomitant]
     Indication: SLEEP DISORDER
     Dosage: 10MG AT NIGHT
     Route: 048
     Dates: end: 20050502

REACTIONS (18)
  - BRUXISM [None]
  - CALCINOSIS [None]
  - CEREBRAL ATROPHY [None]
  - CEREBRAL VENTRICLE DILATATION [None]
  - DISTURBANCE IN ATTENTION [None]
  - DYSKINESIA [None]
  - EAR PAIN [None]
  - EXTRAPYRAMIDAL DISORDER [None]
  - GRAND MAL CONVULSION [None]
  - HEADACHE [None]
  - HYPERTONIA [None]
  - LOSS OF CONSCIOUSNESS [None]
  - MANIA [None]
  - MUSCLE SPASTICITY [None]
  - MUSCULOSKELETAL STIFFNESS [None]
  - POSTICTAL STATE [None]
  - STOMACH DISCOMFORT [None]
  - TARDIVE DYSKINESIA [None]
